FAERS Safety Report 8182449-7 (Version None)
Quarter: 2012Q1

REPORT INFORMATION
  Report Type: 
  Country: None (occurrence: None)
  Receive Date: 20120305
  Receipt Date: 20120224
  Transmission Date: 20120608
  Serious: Yes (Hospitalization)
  Sender: FDA-Public Use
  Company Number: US-BIOGENIDEC-2012BI003798

PATIENT
  Age: 31 Year
  Sex: Male

DRUGS (8)
  1. CITALOPRAM HYDROBROMIDE [Concomitant]
  2. ERGOCALCIFEROL [Concomitant]
  3. TYSABRI [Suspect]
     Indication: MULTIPLE SCLEROSIS
     Route: 042
     Dates: start: 20070329, end: 20090609
  4. TYSABRI [Suspect]
     Route: 042
     Dates: start: 20120117
  5. ENOXAPARIN [Concomitant]
  6. BACLOFEN [Concomitant]
  7. TYSABRI [Suspect]
     Route: 042
     Dates: start: 20100618, end: 20111129
  8. SULFASALAZINE [Concomitant]

REACTIONS (2)
  - CELLULITIS [None]
  - MULTIPLE SCLEROSIS RELAPSE [None]
